FAERS Safety Report 10622397 (Version 1)
Quarter: 2014Q4

REPORT INFORMATION
  Report Type: Spontaneous
  Country: US (occurrence: None)
  Receive Date: 20141202
  Receipt Date: 20141202
  Transmission Date: 20150529
  Serious: Yes (Hospitalization)
  Sender: FDA-Public Use
  Company Number: None

PATIENT
  Age: 64 Year
  Sex: Male

DRUGS (2)
  1. HYDROMORPHONE [Suspect]
     Active Substance: HYDROMORPHONE
     Indication: PAIN
     Route: 042
     Dates: start: 20141030, end: 20141031
  2. MORPHINE [Suspect]
     Active Substance: MORPHINE
     Indication: PAIN
     Route: 048
     Dates: start: 20141010, end: 20141101

REACTIONS (5)
  - Somnolence [None]
  - Respiratory depression [None]
  - Sedation [None]
  - Respiratory acidosis [None]
  - Mental status changes [None]

NARRATIVE: CASE EVENT DATE: 20141101
